FAERS Safety Report 13317309 (Version 5)
Quarter: 2018Q2

REPORT INFORMATION
  Report Type: Spontaneous
  Country: FI (occurrence: FI)
  Receive Date: 20170310
  Receipt Date: 20180607
  Transmission Date: 20180711
  Serious: Yes (Life-Threatening, Hospitalization, Other)
  Sender: FDA-Public Use
  Company Number: FI-AUROBINDO-AUR-APL-2017-30536

PATIENT
  Age: 49 Year
  Sex: Male

DRUGS (112)
  1. OLANZAPINE. [Suspect]
     Active Substance: OLANZAPINE
     Dosage: ()
  2. OLANZAPINE. [Suspect]
     Active Substance: OLANZAPINE
     Dosage: ()
     Route: 065
  3. OLANZAPINE. [Suspect]
     Active Substance: OLANZAPINE
     Dosage: ()
  4. ZUCLOPENTHIXOL [Suspect]
     Active Substance: ZUCLOPENTHIXOL
     Indication: PRODUCT USED FOR UNKNOWN INDICATION
     Dosage: ()
     Route: 065
  5. DIAZEPAM. [Suspect]
     Active Substance: DIAZEPAM
     Indication: PRODUCT USED FOR UNKNOWN INDICATION
     Dosage: ()
  6. HALOPERIDOL. [Suspect]
     Active Substance: HALOPERIDOL
     Dosage: ()
  7. QUETIAPINE. [Suspect]
     Active Substance: QUETIAPINE
     Indication: PRODUCT USED FOR UNKNOWN INDICATION
     Dosage: UNK
     Route: 065
  8. QUETIAPINE. [Suspect]
     Active Substance: QUETIAPINE
     Dosage: ()
  9. INSULIN [Concomitant]
     Active Substance: INSULIN NOS
  10. GLIMEPIRIDE. [Concomitant]
     Active Substance: GLIMEPIRIDE
     Route: 065
  11. FUROSEMIDE. [Concomitant]
     Active Substance: FUROSEMIDE
     Dosage: ()
     Route: 065
  12. FUROSEMIDE. [Concomitant]
     Active Substance: FUROSEMIDE
     Dosage: ()
  13. ENALAPRIL [Concomitant]
     Active Substance: ENALAPRIL
     Dosage: ()
     Route: 065
  14. INSULIN ASPART [Concomitant]
     Active Substance: INSULIN ASPART
     Indication: TYPE 2 DIABETES MELLITUS
     Route: 065
  15. INSULIN ASPART [Concomitant]
     Active Substance: INSULIN ASPART
     Dosage: ()AS NECESSARY
  16. INSULIN ASPART [Concomitant]
     Active Substance: INSULIN ASPART
     Dosage: ()
     Route: 065
  17. LACTULOSE. [Concomitant]
     Active Substance: LACTULOSE
     Dosage: ()
  18. LACTULOSE. [Concomitant]
     Active Substance: LACTULOSE
     Dosage: ()
  19. ZUCLOPENTHIXOL [Suspect]
     Active Substance: ZUCLOPENTHIXOL
     Dosage: ()
  20. QUETIAPINE. [Suspect]
     Active Substance: QUETIAPINE
     Dosage: ()
  21. PANTOPRAZOLE [Concomitant]
     Active Substance: PANTOPRAZOLE
     Indication: PRODUCT USED FOR UNKNOWN INDICATION
     Route: 065
  22. PANTOPRAZOLE [Concomitant]
     Active Substance: PANTOPRAZOLE
     Dosage: ()
  23. PANTOPRAZOLE [Concomitant]
     Active Substance: PANTOPRAZOLE
     Dosage: ()
  24. FUROSEMIDE. [Concomitant]
     Active Substance: FUROSEMIDE
     Dosage: ()
  25. THYROXINE [Concomitant]
     Active Substance: LEVOTHYROXINE
     Dosage: ()
  26. THYROXINE [Concomitant]
     Active Substance: LEVOTHYROXINE
     Dosage: ()
  27. INSULIN ASPART [Concomitant]
     Active Substance: INSULIN ASPART
     Dosage: ()AS NECESSARY
  28. ZOPICLONE [Suspect]
     Active Substance: ZOPICLONE
     Dosage: ()
  29. ZOPICLONE [Suspect]
     Active Substance: ZOPICLONE
     Dosage: ()
  30. GLIMEPIRIDE. [Concomitant]
     Active Substance: GLIMEPIRIDE
     Dosage: 4 MG/DAY ()
  31. GLIMEPIRIDE. [Concomitant]
     Active Substance: GLIMEPIRIDE
     Dosage: 4 MG/DAY ()
     Route: 065
  32. GLIMEPIRIDE. [Concomitant]
     Active Substance: GLIMEPIRIDE
  33. GLIMEPIRIDE. [Concomitant]
     Active Substance: GLIMEPIRIDE
  34. PANTOPRAZOLE [Concomitant]
     Active Substance: PANTOPRAZOLE
     Dosage: ()
  35. FUROSEMIDE. [Concomitant]
     Active Substance: FUROSEMIDE
     Dosage: ()
  36. INSULIN ASPART [Concomitant]
     Active Substance: INSULIN ASPART
     Dosage: ()AS NECESSARY
  37. INSULIN ASPART [Concomitant]
     Active Substance: INSULIN ASPART
     Dosage: ()AS NECESSARY
  38. LACTULOSE. [Concomitant]
     Active Substance: LACTULOSE
     Indication: PRODUCT USED FOR UNKNOWN INDICATION
     Route: 065
  39. LACTULOSE. [Concomitant]
     Active Substance: LACTULOSE
     Dosage: ()
     Route: 065
  40. LACTULOSE. [Concomitant]
     Active Substance: LACTULOSE
     Dosage: ()
  41. INSULINE GLARGINE [Concomitant]
     Active Substance: INSULIN GLARGINE
     Dosage: 30 UNITS/DAY; DISCONTINUED ()
  42. OLANZAPINE. [Suspect]
     Active Substance: OLANZAPINE
     Indication: PRODUCT USED FOR UNKNOWN INDICATION
     Dosage: UNK
     Route: 065
  43. RISPERIDONE. [Suspect]
     Active Substance: RISPERIDONE
     Indication: PSYCHOTIC DISORDER
     Dosage: UNK
     Route: 065
  44. RISPERIDONE. [Suspect]
     Active Substance: RISPERIDONE
     Dosage: ()
     Route: 065
  45. VALPROIC ACID. [Suspect]
     Active Substance: VALPROIC ACID
     Dosage: ()
  46. VALPROIC ACID. [Suspect]
     Active Substance: VALPROIC ACID
     Dosage: ()
  47. LEVOCETIRIZINE [Suspect]
     Active Substance: LEVOCETIRIZINE
     Dosage: ()
     Route: 065
  48. HALOPERIDOL. [Suspect]
     Active Substance: HALOPERIDOL
     Indication: PRODUCT USED FOR UNKNOWN INDICATION
     Dosage: ()
  49. HALOPERIDOL. [Suspect]
     Active Substance: HALOPERIDOL
     Dosage: ()
  50. QUETIAPINE. [Suspect]
     Active Substance: QUETIAPINE
     Indication: PRODUCT USED FOR UNKNOWN INDICATION
     Dosage: ()
     Route: 048
  51. QUETIAPINE. [Suspect]
     Active Substance: QUETIAPINE
     Dosage: ()
  52. ACETYLSALICYLIC ACID [Concomitant]
     Active Substance: ASPIRIN
     Dosage: ()
  53. FUROSEMIDE. [Concomitant]
     Active Substance: FUROSEMIDE
     Dosage: ()
  54. INSULIN ASPART [Concomitant]
     Active Substance: INSULIN ASPART
     Dosage: ()
  55. ZUCLOPENTHIXOL [Suspect]
     Active Substance: ZUCLOPENTHIXOL
     Dosage: ()
     Route: 065
  56. VALPROIC ACID. [Suspect]
     Active Substance: VALPROIC ACID
     Indication: PRODUCT USED FOR UNKNOWN INDICATION
     Dosage: ()
  57. VALPROIC ACID. [Suspect]
     Active Substance: VALPROIC ACID
     Dosage: ()
  58. QUETIAPINE. [Suspect]
     Active Substance: QUETIAPINE
     Dosage: ()
  59. INSULIN [Concomitant]
     Active Substance: INSULIN NOS
  60. GLIMEPIRIDE. [Concomitant]
     Active Substance: GLIMEPIRIDE
     Dosage: 4 MG/DAY ()
     Route: 065
  61. ACETYLSALICYLIC ACID [Concomitant]
     Active Substance: ASPIRIN
     Indication: PRODUCT USED FOR UNKNOWN INDICATION
     Dosage: ()
     Route: 065
  62. ACETYLSALICYLIC ACID [Concomitant]
     Active Substance: ASPIRIN
     Dosage: ()
  63. PANTOPRAZOLE [Concomitant]
     Active Substance: PANTOPRAZOLE
     Dosage: ()
     Route: 065
  64. PANTOPRAZOLE [Concomitant]
     Active Substance: PANTOPRAZOLE
     Dosage: ()
  65. FUROSEMIDE. [Concomitant]
     Active Substance: FUROSEMIDE
     Dosage: ()
  66. THYROXINE [Concomitant]
     Active Substance: LEVOTHYROXINE
     Dosage: ()
     Route: 065
  67. LACTULOSE. [Concomitant]
     Active Substance: LACTULOSE
     Dosage: ()
  68. INSULINE GLARGINE [Concomitant]
     Active Substance: INSULIN GLARGINE
     Dosage: RE-INITIATED ()
     Route: 065
  69. INSULINE GLARGINE [Concomitant]
     Active Substance: INSULIN GLARGINE
     Dosage: 42 UNITS/DAY
     Route: 065
  70. RISPERIDONE. [Suspect]
     Active Substance: RISPERIDONE
     Dosage: ()
  71. DIAZEPAM. [Suspect]
     Active Substance: DIAZEPAM
     Dosage: ()
  72. VALPROIC ACID. [Suspect]
     Active Substance: VALPROIC ACID
     Dosage: ()
  73. HALOPERIDOL. [Suspect]
     Active Substance: HALOPERIDOL
     Indication: PRODUCT USED FOR UNKNOWN INDICATION
     Route: 065
  74. ZOPICLONE [Suspect]
     Active Substance: ZOPICLONE
     Dosage: ()
  75. GLIMEPIRIDE. [Concomitant]
     Active Substance: GLIMEPIRIDE
     Indication: TYPE 2 DIABETES MELLITUS
     Dosage: 4 MILLIGRAM
  76. ACETYLSALICYLIC ACID [Concomitant]
     Active Substance: ASPIRIN
     Dosage: ()
  77. PANTOPRAZOLE [Concomitant]
     Active Substance: PANTOPRAZOLE
     Dosage: ()
     Route: 065
  78. ENALAPRIL [Concomitant]
     Active Substance: ENALAPRIL
     Indication: PRODUCT USED FOR UNKNOWN INDICATION
     Route: 065
  79. ENALAPRIL [Concomitant]
     Active Substance: ENALAPRIL
     Dosage: ()
     Route: 065
  80. ENALAPRIL [Concomitant]
     Active Substance: ENALAPRIL
     Dosage: ()
  81. THYROXINE [Concomitant]
     Active Substance: LEVOTHYROXINE
     Indication: PRODUCT USED FOR UNKNOWN INDICATION
     Route: 065
  82. THYROXINE [Concomitant]
     Active Substance: LEVOTHYROXINE
     Dosage: ()
     Route: 065
  83. OLANZAPINE. [Suspect]
     Active Substance: OLANZAPINE
     Dosage: ()
  84. RISPERIDONE. [Suspect]
     Active Substance: RISPERIDONE
     Dosage: ()
  85. RISPERIDONE. [Suspect]
     Active Substance: RISPERIDONE
     Dosage: ()
  86. DIAZEPAM. [Suspect]
     Active Substance: DIAZEPAM
     Dosage: ()
  87. ZOPICLONE [Suspect]
     Active Substance: ZOPICLONE
     Dosage: ()
  88. QUETIAPINE. [Suspect]
     Active Substance: QUETIAPINE
     Dosage: ()
     Route: 048
  89. INSULIN [Concomitant]
     Active Substance: INSULIN NOS
     Indication: TYPE 2 DIABETES MELLITUS
     Dosage: 42 INTERNATIONAL UNIT
  90. INSULIN [Concomitant]
     Active Substance: INSULIN NOS
  91. GLIMEPIRIDE. [Concomitant]
     Active Substance: GLIMEPIRIDE
  92. ACETYLSALICYLIC ACID [Concomitant]
     Active Substance: ASPIRIN
     Dosage: ()
  93. FUROSEMIDE. [Concomitant]
     Active Substance: FUROSEMIDE
     Indication: PRODUCT USED FOR UNKNOWN INDICATION
     Route: 065
  94. ENALAPRIL [Concomitant]
     Active Substance: ENALAPRIL
     Dosage: ()
  95. ENALAPRIL [Concomitant]
     Active Substance: ENALAPRIL
     Dosage: ()
  96. ENALAPRIL [Concomitant]
     Active Substance: ENALAPRIL
     Dosage: ()
  97. DIAZEPAM. [Suspect]
     Active Substance: DIAZEPAM
     Dosage: ()
  98. VALPROIC ACID. [Suspect]
     Active Substance: VALPROIC ACID
     Dosage: ()
  99. HALOPERIDOL. [Suspect]
     Active Substance: HALOPERIDOL
     Dosage: ()
     Route: 065
  100. HALOPERIDOL. [Suspect]
     Active Substance: HALOPERIDOL
     Dosage: ()
  101. INSULIN [Concomitant]
     Active Substance: INSULIN NOS
  102. INSULIN [Concomitant]
     Active Substance: INSULIN NOS
     Dosage: DOSE:42 UNIT(S) (1)
     Route: 065
  103. GLIMEPIRIDE. [Concomitant]
     Active Substance: GLIMEPIRIDE
  104. GLIMEPIRIDE. [Concomitant]
     Active Substance: GLIMEPIRIDE
  105. ACETYLSALICYLIC ACID [Concomitant]
     Active Substance: ASPIRIN
     Dosage: ()
  106. PANTOPRAZOLE [Concomitant]
     Active Substance: PANTOPRAZOLE
     Dosage: ()
     Route: 065
  107. PANTOPRAZOLE [Concomitant]
     Active Substance: PANTOPRAZOLE
     Dosage: ()
  108. ENALAPRIL [Concomitant]
     Active Substance: ENALAPRIL
     Dosage: ()
  109. THYROXINE [Concomitant]
     Active Substance: LEVOTHYROXINE
     Dosage: ()
  110. THYROXINE [Concomitant]
     Active Substance: LEVOTHYROXINE
     Dosage: ()
  111. LACTULOSE. [Concomitant]
     Active Substance: LACTULOSE
     Dosage: ()
  112. INSULINE GLARGINE [Concomitant]
     Active Substance: INSULIN GLARGINE
     Indication: TYPE 2 DIABETES MELLITUS
     Dosage: 30 UNITS/DAY; DISCONTINUED ()
     Route: 065

REACTIONS (9)
  - Hypothermia [Recovered/Resolved]
  - Neuroleptic malignant syndrome [Recovered/Resolved]
  - Urinary tract infection [Unknown]
  - Seizure [Unknown]
  - Hypotension [Unknown]
  - Sepsis [Unknown]
  - Hypoglycaemia [Recovered/Resolved]
  - Bradycardia [Unknown]
  - Pneumonia [Unknown]
